FAERS Safety Report 7679892-9 (Version None)
Quarter: 2011Q3

REPORT INFORMATION
  Report Type: 
  Country: None (occurrence: None)
  Receive Date: 20110812
  Receipt Date: 20110810
  Transmission Date: 20111222
  Serious: Yes (Disabling)
  Sender: FDA-Public Use
  Company Number: DE-PFIZER INC-2011183383

PATIENT
  Age: 60 Year
  Sex: Male

DRUGS (2)
  1. RAPAMUNE [Suspect]
     Dosage: 1 MG AND 2 MG ALTERNATE DAYS
     Dates: start: 20110101
  2. RAPAMUNE [Suspect]
     Indication: LIVER TRANSPLANT
     Dosage: 2.5 MG, 1X/DAY
     Dates: start: 20110701, end: 20110101

REACTIONS (2)
  - ASTHENIA [None]
  - C-REACTIVE PROTEIN INCREASED [None]
